FAERS Safety Report 4551224-4 (Version None)
Quarter: 2005Q1

REPORT INFORMATION
  Report Type: 
  Country: None (occurrence: None)
  Receive Date: 20050110
  Receipt Date: 20050105
  Transmission Date: 20050727
  Serious: Yes (Hospitalization)
  Sender: FDA-Public Use
  Company Number: 04-12-1767

PATIENT
  Age: 57 Year
  Sex: Female

DRUGS (4)
  1. CLOZAPINE [Suspect]
     Indication: SCHIZOPHRENIA
     Dosage: 500-600MG QD ORAL
     Route: 048
     Dates: start: 19990301
  2. ABILIFY [Suspect]
     Indication: SCHIZOPHRENIA
     Dosage: 200MG QAM
     Dates: start: 20030131
  3. NEURONTIN [Concomitant]
  4. ESKALITH [Concomitant]

REACTIONS (6)
  - ABASIA [None]
  - DELUSION [None]
  - DIZZINESS [None]
  - FALL [None]
  - LIMB INJURY [None]
  - LOWER LIMB FRACTURE [None]
